FAERS Safety Report 9791781 (Version 5)
Quarter: 2016Q1

REPORT INFORMATION
  Report Type: Report from Study
  Country: AR (occurrence: AR)
  Receive Date: 20140102
  Receipt Date: 20160310
  Transmission Date: 20160526
  Serious: Yes (Life-Threatening, Hospitalization)
  Sender: FDA-Public Use
  Company Number: AR-ROCHE-1300144

PATIENT
  Age: 53 Year
  Sex: Female
  Weight: 95.2 kg

DRUGS (12)
  1. METHOTREXATE [Concomitant]
     Active Substance: METHOTREXATE
     Indication: RHEUMATOID ARTHRITIS
     Route: 030
     Dates: start: 20100217, end: 20120613
  2. METHOTREXATE [Concomitant]
     Active Substance: METHOTREXATE
     Route: 048
     Dates: start: 20131223
  3. FOLIC ACID. [Concomitant]
     Active Substance: FOLIC ACID
     Route: 048
     Dates: start: 200612, end: 20131030
  4. METHOTREXATE [Concomitant]
     Active Substance: METHOTREXATE
     Route: 030
     Dates: start: 20120614, end: 20131030
  5. PREDNISONE. [Concomitant]
     Active Substance: PREDNISONE
     Route: 048
     Dates: start: 20131221
  6. PREDNISONE. [Concomitant]
     Active Substance: PREDNISONE
     Indication: RHEUMATOID ARTHRITIS
     Route: 048
     Dates: start: 20090821
  7. TOCILIZUMAB [Suspect]
     Active Substance: TOCILIZUMAB
     Indication: RHEUMATOID ARTHRITIS
     Dosage: MOST RECENT DOSE ON 22/JAN/2013 WITH LAST DOSE ADMINISTERED 4 MG/KG
     Route: 042
     Dates: start: 20120515
  8. URSODEOXYCHOLIC ACID [Concomitant]
     Active Substance: URSODIOL
     Indication: HEPATIC ENZYME INCREASED
     Route: 048
     Dates: start: 20120627, end: 20121126
  9. OXAGESIC [Concomitant]
     Indication: RHEUMATOID ARTHRITIS
     Dosage: 50 MG DICLOFENAC/ 300 MG PARACETAMOL
     Route: 048
     Dates: start: 201112, end: 20131219
  10. OPTAMOX DUO [Concomitant]
     Indication: ERYSIPELAS
     Dosage: 875 MG AMOXICILLIN/125 MG CLAVULANATE
     Route: 048
     Dates: start: 20131118, end: 20131219
  11. HYDROCORTISONE. [Concomitant]
     Active Substance: HYDROCORTISONE
     Indication: RHEUMATOID ARTHRITIS
     Route: 042
     Dates: start: 20131219, end: 20131220
  12. DICLOFENAC [Concomitant]
     Active Substance: DICLOFENAC
     Indication: RHEUMATOID ARTHRITIS
     Route: 042
     Dates: start: 20131220, end: 20131223

REACTIONS (1)
  - Uterine cancer [Recovered/Resolved with Sequelae]

NARRATIVE: CASE EVENT DATE: 20130205
